FAERS Safety Report 11194466 (Version 3)
Quarter: 2016Q4

REPORT INFORMATION
  Report Type: Spontaneous
  Country: BR (occurrence: BR)
  Receive Date: 20150616
  Receipt Date: 20161020
  Transmission Date: 20170206
  Serious: Yes (Hospitalization, Other)
  Sender: FDA-Public Use
  Company Number: BR-DSJP-DSE-2015-118410

PATIENT

DRUGS (2)
  1. BENICAR [Suspect]
     Active Substance: OLMESARTAN MEDOXOMIL
     Indication: HYPERTENSION
     Dosage: 20 MG, QD
     Dates: end: 201506
  2. BENICAR [Suspect]
     Active Substance: OLMESARTAN MEDOXOMIL
     Dosage: 20 UNK, UNK
     Route: 048
     Dates: start: 201506

REACTIONS (17)
  - Gastrointestinal carcinoma [Recovered/Resolved]
  - Abdominal neoplasm [Not Recovered/Not Resolved]
  - Dehydration [Recovered/Resolved]
  - Bladder cancer [Recovered/Resolved]
  - Colostomy closure [Recovered/Resolved]
  - Ureteric cancer local [Recovered/Resolved]
  - Malnutrition [Recovered/Resolved]
  - Dizziness [Recovered/Resolved]
  - Lung disorder [Not Recovered/Not Resolved]
  - Diarrhoea [Recovered/Resolved]
  - Hydronephrosis [Not Recovered/Not Resolved]
  - Nausea [Recovered/Resolved]
  - Skin disorder [Not Recovered/Not Resolved]
  - Hypotension [Recovered/Resolved]
  - Intentional product misuse [Recovered/Resolved]
  - Malaise [Recovered/Resolved]
  - Skin exfoliation [Not Recovered/Not Resolved]

NARRATIVE: CASE EVENT DATE: 2007
